FAERS Safety Report 18877364 (Version 4)
Quarter: 2025Q4

REPORT INFORMATION
  Report Type: Spontaneous
  Country: US (occurrence: US)
  Receive Date: 20210211
  Receipt Date: 20251212
  Transmission Date: 20260119
  Serious: Yes (Other)
  Sender: PFIZER
  Company Number: US-PFIZER INC-2021116332

PATIENT
  Age: 32 Year
  Sex: Male

DRUGS (1)
  1. BENEFIX [Suspect]
     Active Substance: COAGULATION FACTOR IX RECOMBINANT HUMAN\ISOPROPYL ALCOHOL
     Indication: Haemorrhage
     Dosage: INFUSE 6370 UNITS +/- 10% (100 UNITS/KG) VIA SLOW IV PUSH EVERY 12-24 HOURS
     Route: 042

REACTIONS (1)
  - Haemorrhage [Unknown]
